FAERS Safety Report 5336994-X (Version None)
Quarter: 2007Q2

REPORT INFORMATION
  Report Type: 
  Country: None (occurrence: None)
  Receive Date: 20070524
  Receipt Date: 20070509
  Transmission Date: 20071010
  Serious: Yes (Death)
  Sender: FDA-Public Use
  Company Number: GXKR2007JP04190

PATIENT
  Age: 10 Month
  Sex: Female

DRUGS (4)
  1. RIFAMPICIN [Suspect]
     Indication: TUBERCULOSIS
  2. ETHAMBUTOL HYDROCHLORIDE [Concomitant]
  3. ISONIAZID [Concomitant]
  4. STREPTOMYCIN SULFATE (STREPTOMYCIN SULFATE) [Concomitant]

REACTIONS (1)
  - RESPIRATORY FAILURE [None]
